FAERS Safety Report 11612094 (Version 2)
Quarter: 2015Q4

REPORT INFORMATION
  Report Type: Spontaneous
  Country: US (occurrence: US)
  Receive Date: 20151008
  Receipt Date: 20151026
  Transmission Date: 20160304
  Serious: Yes (Hospitalization, Other)
  Sender: FDA-Public Use
  Company Number: US-VERTEX PHARMACEUTICALS-2015-004306

PATIENT
  Age: 22 Year
  Sex: Male
  Weight: 64 kg

DRUGS (13)
  1. ZENPEP [Concomitant]
     Active Substance: PANCRELIPASE\PANCRELIPASE AMYLASE\PANCRELIPASE LIPASE\PANCRELIPASE PROTEASE
     Indication: CYSTIC FIBROSIS
  2. AMIKACIN [Concomitant]
     Active Substance: AMIKACIN
     Dosage: EVERY OTHER MONTH
     Route: 055
  3. CLARITIN [Concomitant]
     Active Substance: LORATADINE
     Indication: HYPERSENSITIVITY
  4. PULMOZYME [Concomitant]
     Active Substance: DORNASE ALFA
     Dosage: UNK, BID
  5. VITAMINS [Concomitant]
     Active Substance: VITAMINS
     Indication: CYSTIC FIBROSIS
  6. HYPERTONIC SALINE SOLUTION [Concomitant]
     Active Substance: SODIUM CHLORIDE
     Dosage: UNK, BID
  7. VITAMIN D [Concomitant]
     Active Substance: CHOLECALCIFEROL
     Indication: CYSTIC FIBROSIS
  8. URSODIOL. [Concomitant]
     Active Substance: URSODIOL
     Indication: CYSTIC FIBROSIS
     Dosage: 300 MG, BID
  9. ACIDOPHILUS PROBIOTIC [Concomitant]
  10. SYMBICORT [Concomitant]
     Active Substance: BUDESONIDE\FORMOTEROL FUMARATE DIHYDRATE
     Dosage: UNK, QD
  11. ALBUTEROL. [Concomitant]
     Active Substance: ALBUTEROL
     Dosage: UNK, BID
  12. ORKAMBI [Suspect]
     Active Substance: IVACAFTOR\LUMACAFTOR
     Indication: CYSTIC FIBROSIS
     Dosage: 2 DF, BID
     Route: 048
     Dates: start: 20150827, end: 20150923
  13. ZITHROMAX [Concomitant]
     Active Substance: AZITHROMYCIN DIHYDRATE
     Indication: CYSTIC FIBROSIS
     Dosage: MONDAY TO FRIDAY, FIVE DAYS A WEEK

REACTIONS (2)
  - Intestinal obstruction [Recovering/Resolving]
  - Pneumonia [Unknown]

NARRATIVE: CASE EVENT DATE: 20150920
